FAERS Safety Report 17495832 (Version 3)
Quarter: 2020Q1

REPORT INFORMATION
  Report Type: Report from Study
  Country: US (occurrence: US)
  Receive Date: 20200303
  Receipt Date: 20200324
  Transmission Date: 20200409
  Serious: Yes (Hospitalization)
  Sender: FDA-Public Use
  Company Number: US-ACTELION-A-NJ2020-202436

PATIENT
  Age: 79 Year
  Sex: Male
  Weight: 97.05 kg

DRUGS (2)
  1. OPSUMIT [Suspect]
     Active Substance: MACITENTAN
     Indication: PULMONARY ARTERIAL HYPERTENSION
     Dosage: 10 MG, QD
     Route: 048
     Dates: start: 20200217
  2. ADEMPAS [Suspect]
     Active Substance: RIOCIGUAT
     Indication: PRODUCT USED FOR UNKNOWN INDICATION
     Dosage: 2.5 MG, TID
     Route: 065

REACTIONS (5)
  - Cerebral haemorrhage [Recovered/Resolved]
  - Red blood cell count decreased [Unknown]
  - Splenic injury [Unknown]
  - Loss of consciousness [Unknown]
  - Road traffic accident [Unknown]

NARRATIVE: CASE EVENT DATE: 20200218
